FAERS Safety Report 8145447-5 (Version None)
Quarter: 2012Q1

REPORT INFORMATION
  Report Type: 
  Country: None (occurrence: None)
  Receive Date: 20120217
  Receipt Date: 20120209
  Transmission Date: 20120608
  Serious: Yes (Other)
  Sender: FDA-Public Use
  Company Number: US-ELI_LILLY_AND_COMPANY-US201202003747

PATIENT
  Sex: Male
  Weight: 83.447 kg

DRUGS (3)
  1. METOPROLOL TARTRATE [Concomitant]
  2. EFFIENT [Suspect]
     Indication: STENT PLACEMENT
     Dosage: 10 MG, QD
     Dates: start: 20110901
  3. ASPIRIN [Concomitant]
     Dosage: 325 MG, UNK

REACTIONS (1)
  - COELIAC DISEASE [None]
